FAERS Safety Report 4297264-4 (Version None)
Quarter: 2004Q1

REPORT INFORMATION
  Report Type: 
  Country: None (occurrence: None)
  Receive Date: 20040211
  Receipt Date: 20040205
  Transmission Date: 20041129
  Serious: Yes (Disabling)
  Sender: FDA-Public Use
  Company Number: US-BRISTOL-MYERS SQUIBB COMPANY-12497392

PATIENT
  Age: 74 Year
  Sex: Female

DRUGS (3)
  1. ESTRACE [Suspect]
     Indication: HORMONE REPLACEMENT THERAPY
     Route: 048
     Dates: end: 20040101
  2. VERAPAMIL [Concomitant]
  3. PEPCID [Concomitant]

REACTIONS (2)
  - NERVOUS SYSTEM DISORDER [None]
  - VISUAL FIELD DEFECT [None]
